FAERS Safety Report 12355275 (Version 1)
Quarter: 2016Q2

REPORT INFORMATION
  Report Type: Spontaneous
  Country: US (occurrence: None)
  Receive Date: 20160510
  Receipt Date: 20160510
  Transmission Date: 20160815
  Serious: Yes (Other)
  Sender: FDA-Public Use
  Company Number: None

PATIENT
  Age: 74 Year
  Sex: Female
  Weight: 63.5 kg

DRUGS (2)
  1. COUMADIN [Suspect]
     Active Substance: WARFARIN SODIUM
  2. PREVIDENT [Suspect]
     Active Substance: SODIUM FLUORIDE
     Indication: DENTAL CARIES
     Dosage: 1 DROP(S) AT BEDTIME TEETH
     Dates: start: 20160419, end: 20160420

REACTIONS (2)
  - Drug interaction [None]
  - International normalised ratio increased [None]

NARRATIVE: CASE EVENT DATE: 20160421
